FAERS Safety Report 7771532-3 (Version None)
Quarter: 2011Q3

REPORT INFORMATION
  Report Type: 
  Country: None (occurrence: None)
  Receive Date: 20110922
  Receipt Date: 20110413
  Transmission Date: 20111222
  Serious: No
  Sender: FDA-Public Use
  Company Number: US-ASTRAZENECA-2010SE00512

PATIENT
  Age: 40 Year
  Sex: Female
  Weight: 149.7 kg

DRUGS (10)
  1. SEROQUEL [Suspect]
     Indication: DEPRESSION
     Route: 048
     Dates: start: 20040101
  2. KENALOG [Concomitant]
     Dosage: 0.1 % 1 APP 3 TIMES A DAY
     Dates: start: 20100511
  3. OMEPRAZOLE [Concomitant]
     Dates: start: 20100511
  4. AMBIEN [Concomitant]
     Dates: start: 20100511
  5. VENLAFAXINE HYDROCHLORIDE [Concomitant]
     Dates: start: 20100511
  6. SEROQUEL [Suspect]
     Route: 048
     Dates: start: 20100511
  7. GLYBURIDE [Concomitant]
     Dates: start: 20100511
  8. SEROQUEL [Suspect]
     Route: 048
     Dates: start: 20040628
  9. FLEXERIL [Concomitant]
     Dosage: 10 MG QHS PRN
     Dates: start: 20100511
  10. TRICOR [Concomitant]
     Dates: start: 20100511

REACTIONS (7)
  - BLOOD CHOLESTEROL INCREASED [None]
  - HYPERCHOLESTEROLAEMIA [None]
  - OBESITY [None]
  - HYPERLIPIDAEMIA [None]
  - WEIGHT INCREASED [None]
  - TYPE 2 DIABETES MELLITUS [None]
  - BLOOD TRIGLYCERIDES INCREASED [None]
